FAERS Safety Report 17444281 (Version 7)
Quarter: 2024Q3

REPORT INFORMATION
  Report Type: Spontaneous
  Country: US (occurrence: US)
  Receive Date: 20200221
  Receipt Date: 20240916
  Transmission Date: 20241017
  Serious: No
  Sender: AMGEN
  Company Number: US-PFIZER INC-2020073939

PATIENT
  Age: 51 Year
  Sex: Female

DRUGS (1)
  1. ENBREL [Suspect]
     Active Substance: ETANERCEPT
     Indication: Product used for unknown indication
     Dosage: UNK MG
     Route: 065

REACTIONS (2)
  - Drug hypersensitivity [Not Recovered/Not Resolved]
  - Urticaria [Unknown]
